FAERS Safety Report 4594036-8 (Version None)
Quarter: 2005Q1

REPORT INFORMATION
  Report Type: 
  Country: None (occurrence: None)
  Receive Date: 20050301
  Receipt Date: 20041228
  Transmission Date: 20050727
  Serious: Yes (Hospitalization)
  Sender: FDA-Public Use
  Company Number: US-MERCK-0412USA03101

PATIENT
  Age: 70 Year
  Sex: Male

DRUGS (10)
  1. VIOXX [Suspect]
     Indication: BACK PAIN
     Route: 048
     Dates: start: 20001001, end: 20040901
  2. ZOLOFT [Concomitant]
     Route: 065
  3. LOPRESSOR [Concomitant]
     Route: 065
  4. PRILOSEC [Concomitant]
     Route: 065
  5. ASPIRIN [Concomitant]
     Route: 065
  6. HYTRIN [Concomitant]
     Route: 065
  7. LIBRIUM [Concomitant]
     Route: 065
  8. LIPITOR [Concomitant]
     Route: 065
  9. NITROSTAT [Concomitant]
     Route: 065
  10. ALTACE [Concomitant]
     Route: 065

REACTIONS (27)
  - ANGINA PECTORIS [None]
  - ANGINA UNSTABLE [None]
  - ARTHROPATHY [None]
  - ATHEROSCLEROSIS [None]
  - BLOOD PRESSURE INCREASED [None]
  - CARDIAC STRESS TEST ABNORMAL [None]
  - CEREBRAL ISCHAEMIA [None]
  - CEREBROVASCULAR ACCIDENT [None]
  - CHEST DISCOMFORT [None]
  - CHEST PAIN [None]
  - CORONARY ARTERY ATHEROSCLEROSIS [None]
  - CORONARY ARTERY DISEASE [None]
  - CORONARY ARTERY STENOSIS [None]
  - DIZZINESS [None]
  - DYSPNOEA [None]
  - FATIGUE [None]
  - HYPERLIPIDAEMIA [None]
  - HYPERTENSION [None]
  - MYOCARDIAL INFARCTION [None]
  - MYOCARDIAL ISCHAEMIA [None]
  - NAUSEA [None]
  - NYSTAGMUS [None]
  - OEDEMA PERIPHERAL [None]
  - OSTEOARTHRITIS [None]
  - PALPITATIONS [None]
  - PROCEDURAL COMPLICATION [None]
  - VERTIGO [None]
